FAERS Safety Report 6207881-X (Version None)
Quarter: 2009Q2

REPORT INFORMATION
  Report Type: 
  Country: None (occurrence: None)
  Receive Date: 20090529
  Receipt Date: 20090515
  Transmission Date: 20091009
  Serious: Yes (Life-Threatening)
  Sender: FDA-Public Use
  Company Number: GB-RANBAXY-2009RR-24302

PATIENT
  Age: 60 Year
  Sex: Female

DRUGS (22)
  1. RAMIPRIL [Suspect]
     Indication: HYPERTENSION
     Dosage: 2.5 MG, UNK
     Route: 048
     Dates: start: 20090423, end: 20090430
  2. LORATADINE [Suspect]
     Indication: PRURITUS GENERALISED
     Dosage: 10 MG, UNK
     Route: 048
     Dates: start: 20090423, end: 20090430
  3. AMOXICILLIN [Concomitant]
  4. AQUEOUS CREAM [Concomitant]
  5. ASPIRIN [Concomitant]
  6. BECLOMETHASONE DIPROPIONATE [Concomitant]
  7. BENDROFLUMETHIAZIDE [Concomitant]
  8. CETIRIZINE [Concomitant]
  9. CODEINE PHOSPHATE [Concomitant]
  10. DAKTACORT [Concomitant]
  11. DICLOFENAC SODIUM [Concomitant]
  12. FLOXACILLIN SODIUM [Concomitant]
  13. GABAPENTIN [Concomitant]
  14. GASTROCOTE [Concomitant]
  15. HYPROMELLOSE [Concomitant]
  16. KLIOFEM [Concomitant]
  17. OMEPRAZOLE [Concomitant]
  18. PARACETAMOL [Concomitant]
  19. PEPPERMINT OIL [Concomitant]
  20. ALBUTEROL [Concomitant]
  21. THIAMINE HCL [Concomitant]
  22. VITAMIN B SUBSTANCES [Concomitant]

REACTIONS (1)
  - ANGIOEDEMA [None]
